FAERS Safety Report 11029800 (Version 1)
Quarter: 2015Q2

REPORT INFORMATION
  Report Type: Spontaneous
  Country: US (occurrence: None)
  Receive Date: 20150414
  Receipt Date: 20150414
  Transmission Date: 20150821
  Serious: Yes (Hospitalization)
  Sender: FDA-Public Use
  Company Number: None

PATIENT
  Age: 69 Year
  Sex: Female

DRUGS (1)
  1. ENBREL [Suspect]
     Active Substance: ETANERCEPT
     Indication: ARTHROPATHY
     Dosage: 50MG, EVERY WEEK, SUBCUTANEOUSLY
     Route: 058
     Dates: start: 20140619, end: 20150301

REACTIONS (1)
  - Seizure [None]

NARRATIVE: CASE EVENT DATE: 20150301
